FAERS Safety Report 8017493-3 (Version None)
Quarter: 2012Q1

REPORT INFORMATION
  Report Type: 
  Country: None (occurrence: None)
  Receive Date: 20120103
  Receipt Date: 20111214
  Transmission Date: 20120608
  Serious: Yes (Death)
  Sender: FDA-Public Use
  Company Number: US-PAR PHARMACEUTICAL, INC-2011SCPR003782

PATIENT
  Age: 38 Year
  Sex: Male

DRUGS (6)
  1. TRAMADOL HCL [Suspect]
     Indication: PRODUCT USED FOR UNKNOWN INDICATION
     Dosage: UNK, UNKNOWN, INGST+ INHAL
  2. ETHANOL [Suspect]
     Indication: PRODUCT USED FOR UNKNOWN INDICATION
     Dosage: UNK, UNKNOWN, INGST+ INHAL
  3. DIAZEPAM [Suspect]
     Indication: PRODUCT USED FOR UNKNOWN INDICATION
     Dosage: , UNK, UNKNOWN, INGST+ INHAL
  4. COCAINE [Suspect]
     Indication: PRODUCT USED FOR UNKNOWN INDICATION
     Dosage: UNK, UNKNOWN, INGST+ INHAL
  5. MORPHINE [Suspect]
     Indication: PRODUCT USED FOR UNKNOWN INDICATION
     Dosage: UNK, UNKNOWN, INGST+ INHAL
  6. ACETAMINOPHEN AND HYDROCODONE BITARTRATE [Suspect]
     Indication: PRODUCT USED FOR UNKNOWN INDICATION
     Dosage: UNK, UNKNOWN, INGST+ INHAL

REACTIONS (3)
  - DEATH [None]
  - COMPLETED SUICIDE [None]
  - CARDIO-RESPIRATORY ARREST [None]
